FAERS Safety Report 17257126 (Version 4)
Quarter: 2020Q1

REPORT INFORMATION
  Report Type: Spontaneous
  Country: IT (occurrence: IT)
  Receive Date: 20200110
  Receipt Date: 20200304
  Transmission Date: 20200409
  Serious: Yes (Death, Other)
  Sender: FDA-Public Use
  Company Number: IT-SA-2020SA006457

PATIENT
  Age: 46 Year
  Sex: Female
  Weight: 55 kg

DRUGS (2)
  1. LEMTRADA [Suspect]
     Active Substance: ALEMTUZUMAB
     Dosage: 12 MG
     Dates: start: 20180729, end: 20180731
  2. LEMTRADA [Suspect]
     Active Substance: ALEMTUZUMAB
     Indication: MULTIPLE SCLEROSIS
     Dosage: 12 MG, QCY
     Route: 042
     Dates: start: 20170710

REACTIONS (9)
  - Lymphopenia [Fatal]
  - Pneumonia [Recovered/Resolved]
  - Pyelonephritis [Fatal]
  - Neutropenia [Fatal]
  - Herpes zoster [Unknown]
  - Septic shock [Fatal]
  - Multiple organ dysfunction syndrome [Fatal]
  - Pulmonary oedema [Fatal]
  - Lymphangitis [Unknown]

NARRATIVE: CASE EVENT DATE: 2018
